FAERS Safety Report 7530579-2 (Version None)
Quarter: 2011Q2

REPORT INFORMATION
  Report Type: 
  Country: None (occurrence: None)
  Receive Date: 20110607
  Receipt Date: 20110601
  Transmission Date: 20111010
  Serious: Yes (Hospitalization)
  Sender: FDA-Public Use
  Company Number: CA-ABBOTT-11P-028-0709944-00

PATIENT
  Sex: Female
  Weight: 63.56 kg

DRUGS (5)
  1. LIPITOR [Concomitant]
     Indication: BLOOD CHOLESTEROL
  2. HUMIRA [Suspect]
     Indication: RHEUMATOID ARTHRITIS
     Route: 058
     Dates: start: 20070215
  3. ATENOLOL [Concomitant]
     Indication: CARDIAC DISORDER
     Route: 048
     Dates: start: 20080101
  4. COUMADIN [Concomitant]
     Indication: ANTICOAGULANT THERAPY
  5. PREDNISONE [Concomitant]
     Indication: ARTHRITIS
     Route: 048

REACTIONS (3)
  - PULMONARY EMBOLISM [None]
  - PULMONARY FIBROSIS [None]
  - CHEST DISCOMFORT [None]
